FAERS Safety Report 21023452 (Version 1)
Quarter: 2022Q2

REPORT INFORMATION
  Report Type: Spontaneous
  Country: US (occurrence: US)
  Receive Date: 20220629
  Receipt Date: 20220629
  Transmission Date: 20220721
  Serious: No
  Sender: FDA-Public Use
  Company Number: US-SANOFI-01164958

PATIENT
  Age: 24 Year
  Sex: Male

DRUGS (1)
  1. ELITEK [Suspect]
     Active Substance: RASBURICASE
     Dosage: DOSAGE : ONE DOSE DRUG INTERVAL DOSAGE : ONCE

REACTIONS (1)
  - White blood cell count increased [Unknown]
